FAERS Safety Report 9885292 (Version 1)
Quarter: 2014Q1

REPORT INFORMATION
  Report Type: Spontaneous
  Country: US (occurrence: US)
  Receive Date: 20140210
  Receipt Date: 20140210
  Transmission Date: 20141002
  Serious: No
  Sender: FDA-Public Use
  Company Number: US-PFIZER INC-2014034078

PATIENT
  Age: 35 Year
  Sex: Female
  Weight: 50.79 kg

DRUGS (1)
  1. ADVIL [Suspect]
     Dosage: 200 MG, AS NEEDED
     Route: 048
     Dates: start: 201312, end: 20140121

REACTIONS (3)
  - Oesophageal pain [Unknown]
  - Oesophageal discomfort [Unknown]
  - Flatulence [Unknown]
